FAERS Safety Report 4835877-9 (Version None)
Quarter: 2005Q4

REPORT INFORMATION
  Report Type: 
  Country: None (occurrence: None)
  Receive Date: 20051118
  Receipt Date: 20051108
  Transmission Date: 20060501
  Serious: Yes (Hospitalization, Other)
  Sender: FDA-Public Use
  Company Number: 2005134882

PATIENT
  Age: 28 Year
  Sex: Female

DRUGS (3)
  1. ZOLOFT [Suspect]
     Indication: DEPRESSION
     Dosage: 50 MG (50 MG, 1 IN 1 D), ORAL
     Route: 048
  2. TRAMADOL HCL [Suspect]
     Indication: PAIN
     Dosage: 300 MG (100 MG, 3 IN 1 D), ORAL
     Route: 048
  3. VALTREX [Concomitant]

REACTIONS (2)
  - CAESAREAN SECTION [None]
  - DRUG EXPOSURE DURING PREGNANCY [None]
